FAERS Safety Report 9114226 (Version 1)
Quarter: 2013Q1

REPORT INFORMATION
  Report Type: Spontaneous
  Country: BD (occurrence: BD)
  Receive Date: 20130128
  Receipt Date: 20130128
  Transmission Date: 20140127
  Serious: Yes (Disabling)
  Sender: FDA-Public Use
  Company Number: PHHY2013BD007453

PATIENT
  Age: 66 Year
  Sex: Female

DRUGS (3)
  1. ACLASTA [Suspect]
     Indication: OSTEOPOROSIS
     Dosage: ONCE YEARLY
     Route: 042
     Dates: start: 20091231
  2. ACLASTA [Suspect]
     Dosage: ONCE YEARLY
     Route: 042
  3. ACLASTA [Suspect]
     Dosage: ONCE YEARLY
     Route: 042
     Dates: start: 20111230

REACTIONS (2)
  - Paraplegia [Not Recovered/Not Resolved]
  - Muscle disorder [Not Recovered/Not Resolved]
